FAERS Safety Report 24960987 (Version 1)
Quarter: 2025Q1

REPORT INFORMATION
  Report Type: Report from Study
  Country: US (occurrence: US)
  Receive Date: 20250212
  Receipt Date: 20250212
  Transmission Date: 20250409
  Serious: Yes (Other)
  Sender: ALEXION PHARMACEUTICALS
  Company Number: US-AstraZeneca-CH-00804089A

PATIENT

DRUGS (1)
  1. ACALABRUTINIB [Suspect]
     Active Substance: ACALABRUTINIB
     Indication: Chronic lymphocytic leukaemia
     Dosage: 100 MILLIGRAM, BID

REACTIONS (12)
  - Coeliac disease [Unknown]
  - Product dose omission issue [Unknown]
  - Illness [Unknown]
  - Blood pressure abnormal [Unknown]
  - Cholelithiasis [Unknown]
  - Influenza [Unknown]
  - Chills [Unknown]
  - Freezing phenomenon [Unknown]
  - Red blood cell count decreased [Unknown]
  - Vasoconstriction [Unknown]
  - Feeling abnormal [Unknown]
  - Loss of personal independence in daily activities [Unknown]
